FAERS Safety Report 8223226-8 (Version None)
Quarter: 2012Q1

REPORT INFORMATION
  Report Type: 
  Country: None (occurrence: None)
  Receive Date: 20120321
  Receipt Date: 20120313
  Transmission Date: 20120608
  Serious: Yes (Hospitalization)
  Sender: FDA-Public Use
  Company Number: US-ROCHE-1017344

PATIENT
  Sex: Female

DRUGS (3)
  1. TELAPREVIR [Suspect]
     Indication: HEPATITIS C
     Dosage: ROUTE: NOT REPORTED
     Dates: start: 20111111
  2. COPEGUS [Suspect]
     Indication: HEPATITIS C
     Dosage: IN DIVIDED DOSES, ROUTE, FORM: NOT REPORTED
     Dates: start: 20111111
  3. PEGINTERFERON ALFA-2A [Suspect]
     Indication: HEPATITIS C
     Dosage: ROUTE: NOT REPORTED
     Route: 058
     Dates: start: 20111111

REACTIONS (9)
  - PALPITATIONS [None]
  - HYPOTENSION [None]
  - EYE HAEMORRHAGE [None]
  - GINGIVAL INFECTION [None]
  - DYSPNOEA [None]
  - FATIGUE [None]
  - DEHYDRATION [None]
  - DIZZINESS [None]
  - BLOOD COUNT ABNORMAL [None]
